FAERS Safety Report 8885660 (Version 1)
Quarter: 2012Q4

REPORT INFORMATION
  Report Type: 
  Country: US (occurrence: US)
  Receive Date: 20121102
  Receipt Date: 20121102
  Transmission Date: 20130627
  Serious: No
  Sender: FDA-Public Use
  Company Number: US-009507513-1210USA013740

PATIENT
  Sex: Male

DRUGS (3)
  1. VICTRELIS [Suspect]
     Indication: HEPATITIS C
     Dosage: 800 mg, UNK, tid
     Route: 048
     Dates: start: 20120507, end: 20121009
  2. PEG-INTRON [Suspect]
     Indication: HEPATITIS C
     Dosage: 120 Microgram, UNK,qw
     Route: 058
     Dates: start: 20120507, end: 20121009
  3. RIBASPHERE [Suspect]
     Indication: HEPATITIS C
     Dosage: 600 mg,qam and 400 mg qpm
     Dates: end: 20121009

REACTIONS (1)
  - Hepatitis C [Unknown]
